FAERS Safety Report 9454682 (Version 3)
Quarter: 2015Q2

REPORT INFORMATION
  Report Type: Spontaneous
  Country: IN (occurrence: IN)
  Receive Date: 20130812
  Receipt Date: 20150430
  Transmission Date: 20150821
  Serious: Yes (Death, Other)
  Sender: FDA-Public Use
  Company Number: PHHY2013IN085289

PATIENT
  Sex: Female

DRUGS (5)
  1. FOLINIC ACID [Concomitant]
     Active Substance: LEUCOVORIN
     Indication: CHORIOCARCINOMA
     Dosage: 15 MG, UNK
     Route: 065
  2. CEFTRIAXONE. [Suspect]
     Active Substance: CEFTRIAXONE
     Indication: PYREXIA
     Dosage: 2 G, QD
     Route: 042
  3. GENTAMICIN. [Suspect]
     Active Substance: GENTAMICIN
     Indication: PYREXIA
     Dosage: 160 MG, QD
     Route: 042
  4. METHOTREXATE [Suspect]
     Active Substance: METHOTREXATE
     Indication: CHORIOCARCINOMA
     Dosage: 50 MG, QD
     Route: 030
  5. PARACETAMOL [Suspect]
     Active Substance: ACETAMINOPHEN
     Indication: PYREXIA
     Route: 065

REACTIONS (11)
  - Toxicity to various agents [Fatal]
  - Dysphagia [Unknown]
  - Cardiac arrest [Fatal]
  - Mucosal inflammation [Unknown]
  - Drug ineffective [Unknown]
  - Mouth ulceration [Unknown]
  - Trismus [Unknown]
  - Generalised oedema [Unknown]
  - Laryngeal ulceration [Unknown]
  - Vomiting [Unknown]
  - Pancytopenia [Fatal]
